FAERS Safety Report 25984629 (Version 2)
Quarter: 2025Q4

REPORT INFORMATION
  Report Type: Spontaneous
  Country: JP (occurrence: JP)
  Receive Date: 20251031
  Receipt Date: 20251104
  Transmission Date: 20260118
  Serious: Yes (Hospitalization, Other)
  Sender: RECORDATI
  Company Number: JP-ORPHANEU-2025007587

PATIENT
  Age: 3 Year
  Sex: Male

DRUGS (4)
  1. BETAINE [Suspect]
     Active Substance: BETAINE
     Indication: Vitamin B12 deficiency
     Dosage: UNK
     Route: 048
  2. SILDENAFIL [Suspect]
     Active Substance: SILDENAFIL
     Indication: Pulmonary arterial hypertension
     Dosage: UNK
  3. MACITENTAN [Suspect]
     Active Substance: MACITENTAN
     Indication: Pulmonary arterial hypertension
     Dosage: UNK
  4. HYDROXOCOBALAMIN [Concomitant]
     Active Substance: HYDROXOCOBALAMIN
     Indication: Vitamin B12 deficiency

REACTIONS (10)
  - Hypophagia [Unknown]
  - Hypoxia [Recovering/Resolving]
  - Cardiac failure congestive [Recovering/Resolving]
  - Pulmonary hypertension [Unknown]
  - Pulmonary arterial hypertension [Unknown]
  - Pulmonary congestion [Recovering/Resolving]
  - Pulmonary veno-occlusive disease [Unknown]
  - Pulmonary capillary haemangiomatosis [Unknown]
  - Lymphadenopathy mediastinal [Unknown]
  - Lung opacity [Unknown]

NARRATIVE: CASE EVENT DATE: 20250101
